FAERS Safety Report 13225729 (Version 1)
Quarter: 2017Q1

REPORT INFORMATION
  Report Type: Report from Study
  Country: None (occurrence: US)
  Receive Date: 20170213
  Receipt Date: 20170213
  Transmission Date: 20170428
  Serious: Yes (Other)
  Sender: FDA-Public Use
  Company Number: US-ABBVIE-17K-163-1865916-00

PATIENT
  Sex: Female

DRUGS (4)
  1. MOTRIN [Concomitant]
     Active Substance: IBUPROFEN
     Indication: MIGRAINE
  2. HUMIRA [Suspect]
     Active Substance: ADALIMUMAB
     Indication: PSORIATIC ARTHROPATHY
     Route: 058
     Dates: start: 20140708, end: 201612
  3. ALBUTEROL. [Concomitant]
     Active Substance: ALBUTEROL
     Indication: ASTHMA
  4. QVAR [Concomitant]
     Active Substance: BECLOMETHASONE DIPROPIONATE
     Indication: ASTHMA

REACTIONS (3)
  - Abdominal pain [Recovered/Resolved]
  - Abdominal hernia [Recovering/Resolving]
  - Fallopian tube obstruction [Recovering/Resolving]

NARRATIVE: CASE EVENT DATE: 2016
